FAERS Safety Report 21878450 (Version 1)
Quarter: 2023Q1

REPORT INFORMATION
  Report Type: Spontaneous
  Country: FR (occurrence: FR)
  Receive Date: 20230118
  Receipt Date: 20230118
  Transmission Date: 20230417
  Serious: Yes (Disabling)
  Sender: FDA-Public Use
  Company Number: None

PATIENT
  Age: 63 Year
  Sex: Male
  Weight: 72 kg

DRUGS (6)
  1. CARBOPLATIN [Interacting]
     Active Substance: CARBOPLATIN
     Indication: Squamous cell carcinoma of lung
     Dosage: 1 DOSAGE FORM
     Route: 042
     Dates: start: 20220718
  2. VERAPAMIL HYDROCHLORIDE [Interacting]
     Active Substance: VERAPAMIL HYDROCHLORIDE
     Indication: Hypertension
     Dosage: 1 DOSAGE FORM
     Route: 048
  3. CERTICAN [Interacting]
     Active Substance: EVEROLIMUS
     Indication: Lung transplant
     Dosage: 3 MILLIGRAM
     Route: 048
  4. URAPIDIL [Interacting]
     Active Substance: URAPIDIL
     Indication: Hypertension
     Dosage: 60 MILLIGRAM
     Route: 048
  5. TACROLIMUS [Interacting]
     Active Substance: TACROLIMUS
     Indication: Lung transplant
     Dosage: 1.5 MILLIGRAM
     Route: 048
  6. PACLITAXEL [Interacting]
     Active Substance: PACLITAXEL
     Indication: Squamous cell carcinoma of lung
     Dosage: 1 DOSAGE FORM (3 WEEKS/4 )
     Route: 042
     Dates: start: 20220718

REACTIONS (3)
  - Oedema peripheral [Not Recovered/Not Resolved]
  - Oedema genital [Not Recovered/Not Resolved]
  - Drug interaction [Unknown]

NARRATIVE: CASE EVENT DATE: 20220801
